FAERS Safety Report 21937429 (Version 1)
Quarter: 2023Q1

REPORT INFORMATION
  Report Type: Report from Study
  Country: CO (occurrence: CO)
  Receive Date: 20230201
  Receipt Date: 20230201
  Transmission Date: 20230418
  Serious: Yes (Hospitalization, Other)
  Sender: FDA-Public Use
  Company Number: CO-ABBVIE-4288132

PATIENT
  Age: 25 Year
  Sex: Male
  Weight: 95 kg

DRUGS (7)
  1. HUMIRA [Suspect]
     Active Substance: ADALIMUMAB
     Indication: Ankylosing spondylitis
     Route: 058
     Dates: start: 20180510, end: 20221230
  2. DIPYRONE [Concomitant]
     Active Substance: DIPYRONE
     Indication: Product used for unknown indication
     Dosage: FREQUENCY TEXT: IN-HOSPITAL MANAGEMENT.
     Route: 042
     Dates: start: 202301
  3. TRAMADOL [Concomitant]
     Active Substance: TRAMADOL
     Indication: Product used for unknown indication
     Dosage: FREQUENCY TEXT: IN-HOSPITAL MANAGEMENT.
     Route: 042
     Dates: start: 202301
  4. AZITHROMYCIN [Concomitant]
     Active Substance: AZITHROMYCIN
     Indication: Cellulitis
     Dosage: 1 TABLET
     Dates: start: 20230113, end: 20230115
  5. CEPHALEXIN [Concomitant]
     Active Substance: CEPHALEXIN
     Indication: Cellulitis
     Route: 048
     Dates: start: 20230113, end: 20230118
  6. ACETAMINOPHEN AND CODEINE [Concomitant]
     Active Substance: ACETAMINOPHEN\CODEINE PHOSPHATE
     Indication: Product used for unknown indication
     Dosage: FREQUENCY TEXT: EVERY 8 HOURS
  7. MORPHINE [Concomitant]
     Active Substance: MORPHINE
     Indication: Product used for unknown indication
     Dosage: IN-HOSPITAL MANAGEMENT
     Route: 042
     Dates: start: 202301

REACTIONS (11)
  - Pain in extremity [Not Recovered/Not Resolved]
  - Cellulitis [Recovering/Resolving]
  - Pain [Not Recovered/Not Resolved]
  - Hypoaesthesia [Recovering/Resolving]
  - Spinal pain [Not Recovered/Not Resolved]
  - Tachycardia [Recovered/Resolved]
  - Mobility decreased [Not Recovered/Not Resolved]
  - Hypotension [Recovered/Resolved]
  - Pyrexia [Recovered/Resolved]
  - Influenza like illness [Recovered/Resolved]
  - Spinal decompression [Unknown]

NARRATIVE: CASE EVENT DATE: 20220801
